FAERS Safety Report 11117164 (Version 1)
Quarter: 2015Q2

REPORT INFORMATION
  Report Type: Spontaneous
  Country: US (occurrence: US)
  Receive Date: 20150515
  Receipt Date: 20150515
  Transmission Date: 20150821
  Serious: No
  Sender: FDA-Public Use
  Company Number: US-PFIZER INC-2015161974

PATIENT
  Age: 50 Year
  Sex: Male

DRUGS (2)
  1. CHANTIX [Suspect]
     Active Substance: VARENICLINE TARTRATE
     Indication: SMOKING CESSATION THERAPY
     Dosage: UNK
     Dates: start: 20150401, end: 2015
  2. CHANTIX [Suspect]
     Active Substance: VARENICLINE TARTRATE
     Dosage: 0.5 MG, UNK
     Dates: start: 2015, end: 2015

REACTIONS (3)
  - Agitation [Unknown]
  - Hypoaesthesia [Unknown]
  - Thinking abnormal [Unknown]

NARRATIVE: CASE EVENT DATE: 2015
